FAERS Safety Report 7594379-X (Version None)
Quarter: 2011Q3

REPORT INFORMATION
  Report Type: 
  Country: None (occurrence: None)
  Receive Date: 20110707
  Receipt Date: 20110628
  Transmission Date: 20111222
  Serious: Yes (Hospitalization)
  Sender: FDA-Public Use
  Company Number: US-BIOGENIDEC-2011BI023748

PATIENT
  Age: 56 Year
  Sex: Female
  Weight: 64 kg

DRUGS (20)
  1. BACLOFEN [Concomitant]
     Indication: MUSCLE SPASTICITY
     Route: 048
  2. FOSAMAX [Concomitant]
     Indication: OSTEOPOROSIS
     Route: 048
  3. PROVIGIL [Concomitant]
  4. ASPIRIN [Concomitant]
     Indication: FACTOR V LEIDEN MUTATION
     Route: 048
  5. COUMADIN [Concomitant]
     Dates: end: 20110501
  6. CELEXA [Concomitant]
     Indication: DEPRESSION
     Route: 048
  7. KEFLEX [Concomitant]
     Dates: start: 20110601, end: 20110601
  8. TYSABRI [Suspect]
     Indication: MULTIPLE SCLEROSIS
     Route: 042
     Dates: start: 20080110
  9. AMBIEN [Concomitant]
     Indication: INSOMNIA
  10. COLACE [Concomitant]
     Indication: CONSTIPATION
     Route: 048
  11. CLARITIN [Concomitant]
     Indication: HYPERSENSITIVITY
     Route: 048
  12. MELATONIN [Concomitant]
     Indication: INSOMNIA
     Route: 048
  13. NORCO [Concomitant]
     Indication: PAIN
  14. XANAX [Concomitant]
     Indication: ANXIETY
     Route: 048
  15. LASIX [Concomitant]
  16. NEXIUM [Concomitant]
     Route: 048
  17. WELLBUTRIN [Concomitant]
     Indication: DEPRESSION
     Route: 048
  18. FERROUS SULFATE TAB [Concomitant]
     Indication: ANAEMIA
     Route: 048
  19. NORCO [Concomitant]
  20. SANCTURA [Concomitant]
     Indication: NEUROGENIC BLADDER

REACTIONS (1)
  - FEMUR FRACTURE [None]
